FAERS Safety Report 8267780-9 (Version None)
Quarter: 2012Q2

REPORT INFORMATION
  Report Type: 
  Country: None (occurrence: None)
  Receive Date: 20120409
  Receipt Date: 20120330
  Transmission Date: 20120825
  Serious: Yes (Other)
  Sender: FDA-Public Use
  Company Number: US-BAYER-2011-094693

PATIENT
  Age: 26 Year
  Sex: Female
  Weight: 53.968 kg

DRUGS (4)
  1. DIFILIN [Concomitant]
  2. DROSPIRENONE AND ETHINYL ESTRADIOL [Suspect]
     Indication: CONTRACEPTION
     Dosage: UNK
     Dates: start: 20090301, end: 20100101
  3. CELEXA [Concomitant]
  4. YASMIN [Suspect]
     Indication: CONTRACEPTION
     Dosage: UNK
     Dates: start: 20050101, end: 20090201

REACTIONS (11)
  - INJURY [None]
  - NAUSEA [None]
  - ALOPECIA [None]
  - DEPRESSION [None]
  - PAIN [None]
  - DIZZINESS [None]
  - DIARRHOEA [None]
  - ABDOMINAL PAIN [None]
  - WEIGHT DECREASED [None]
  - FATIGUE [None]
  - CHOLELITHIASIS [None]
